FAERS Safety Report 9405388 (Version 1)
Quarter: 2013Q3

REPORT INFORMATION
  Report Type: Report from Study
  Country: CO (occurrence: CO)
  Receive Date: 20130717
  Receipt Date: 20130717
  Transmission Date: 20140515
  Serious: Yes (Other)
  Sender: FDA-Public Use
  Company Number: CO-ABBOTT-13P-036-1120168-00

PATIENT
  Age: 45 Year
  Sex: Male
  Weight: 48 kg

DRUGS (1)
  1. HUMIRA [Suspect]
     Indication: PSORIATIC ARTHROPATHY
     Dates: start: 20100323

REACTIONS (3)
  - Pain in extremity [Recovering/Resolving]
  - Inflammation [Recovering/Resolving]
  - Hand fracture [Recovering/Resolving]
